FAERS Safety Report 20499803 (Version 6)
Quarter: 2022Q3

REPORT INFORMATION
  Report Type: Report from Study
  Country: BR (occurrence: None)
  Receive Date: 20220222
  Receipt Date: 20220807
  Transmission Date: 20221027
  Serious: Yes (Hospitalization)
  Sender: FDA-Public Use
  Company Number: BR-ROCHE-3026334

PATIENT
  Age: 59 Year
  Sex: Male
  Weight: 89.8 kg

DRUGS (67)
  1. OCRELIZUMAB [Suspect]
     Active Substance: OCRELIZUMAB
     Indication: Progressive multiple sclerosis
     Dosage: ON 14/DEC/2021, SHE RECEIVED THE MOST RECENT DOSE (600 MG) OF OCRELIZUMAB PRIOR TO THIS AE ONSET.?IN
     Route: 042
     Dates: start: 20190221
  2. AVODART [Concomitant]
     Active Substance: DUTASTERIDE
     Indication: Benign prostatic hyperplasia
     Route: 048
     Dates: start: 201812, end: 201905
  3. SIMVASTATIN [Concomitant]
     Active Substance: SIMVASTATIN
     Indication: Dyslipidaemia
     Route: 048
     Dates: start: 2014
  4. ESCITALOPRAM [Concomitant]
     Active Substance: ESCITALOPRAM OXALATE
     Indication: Anxiety
     Route: 048
     Dates: start: 201703, end: 201905
  5. ESCITALOPRAM [Concomitant]
     Active Substance: ESCITALOPRAM OXALATE
     Route: 048
     Dates: start: 20200211, end: 202105
  6. DUTASTERIDE\TAMSULOSIN [Concomitant]
     Active Substance: DUTASTERIDE\TAMSULOSIN
     Dosage: 0.5 / 0.4 MG
     Route: 048
     Dates: start: 201905
  7. IVERMECTIN [Concomitant]
     Active Substance: IVERMECTIN
     Dosage: NEXT DOSE ON 15/JUL/2020
     Route: 048
     Dates: start: 20200707, end: 20200707
  8. ASTRAZENECA COVID-19 VACCINE [Concomitant]
     Active Substance: AZD-1222
     Dosage: FIRST DOSE ON 18/MAR 2021, SECOND DOSE ON 16/JUL/2021
     Route: 030
     Dates: start: 20210424, end: 20210424
  9. DIOSMIN [Concomitant]
     Active Substance: DIOSMIN
     Indication: Peripheral venous disease
     Route: 048
     Dates: start: 20210123, end: 202104
  10. DIOSMIN [Concomitant]
     Active Substance: DIOSMIN
     Indication: Peripheral venous disease
     Route: 048
     Dates: start: 20210123, end: 202104
  11. CEFTRIAXONE [Concomitant]
     Active Substance: CEFTRIAXONE
     Indication: Pneumonia
     Route: 011
     Dates: start: 20210903, end: 20210906
  12. CEFTRIAXONE [Concomitant]
     Active Substance: CEFTRIAXONE
     Route: 042
     Dates: start: 20220209, end: 20220213
  13. AZITHROMYCIN [Concomitant]
     Active Substance: AZITHROMYCIN
     Indication: Pneumonia
     Route: 048
     Dates: start: 20210903, end: 20210907
  14. ENOXAPARIN [Concomitant]
     Active Substance: ENOXAPARIN
     Indication: Pulmonary embolism
     Route: 058
     Dates: start: 20210904
  15. BACLOFEN [Concomitant]
     Active Substance: BACLOFEN
     Indication: Fatigue
     Route: 048
     Dates: start: 202106
  16. ENOXAPARIN SODIUM [Concomitant]
     Active Substance: ENOXAPARIN SODIUM
     Indication: Pneumonia
     Route: 058
     Dates: end: 20210907
  17. ENOXAPARIN SODIUM [Concomitant]
     Active Substance: ENOXAPARIN SODIUM
     Indication: Pulmonary embolism
  18. METAMIZOLE SODIUM [Concomitant]
     Active Substance: METAMIZOLE SODIUM
     Indication: Pneumonia
     Route: 042
     Dates: start: 20210903, end: 20210903
  19. METAMIZOLE SODIUM [Concomitant]
     Active Substance: METAMIZOLE SODIUM
     Indication: Pulmonary embolism
  20. KETOPROFEN [Concomitant]
     Active Substance: KETOPROFEN
     Indication: Pneumonia
     Route: 042
     Dates: start: 20210903, end: 20210903
  21. KETOPROFEN [Concomitant]
     Active Substance: KETOPROFEN
     Indication: Pulmonary embolism
  22. PANTOZOL [Concomitant]
     Active Substance: PANTOPRAZOLE SODIUM
     Indication: Pneumonia
     Route: 048
     Dates: start: 20210906, end: 20210907
  23. PANTOZOL [Concomitant]
     Active Substance: PANTOPRAZOLE SODIUM
     Indication: Pulmonary embolism
  24. CAPTOPRIL [Concomitant]
     Active Substance: CAPTOPRIL
     Indication: Pneumonia
     Route: 048
     Dates: start: 20210905, end: 20210905
  25. CAPTOPRIL [Concomitant]
     Active Substance: CAPTOPRIL
     Indication: Pulmonary embolism
  26. XARELTO [Concomitant]
     Active Substance: RIVAROXABAN
     Indication: Pulmonary embolism
     Route: 048
     Dates: start: 20210904
  27. XARELTO [Concomitant]
     Active Substance: RIVAROXABAN
     Indication: Deep vein thrombosis
  28. METHYLPREDNISOLONE [Concomitant]
     Active Substance: METHYLPREDNISOLONE
     Indication: Premedication
     Dosage: SUBSEQUENT DOSES ON: 07/MAR/2019, 22/AUG/2019, 30/JAN/2020,16/JUL/2020,23/DEC/2020, 18/JUN/2021,14/D
     Route: 042
     Dates: start: 20190221
  29. ALLEGRA [Concomitant]
     Active Substance: FEXOFENADINE HYDROCHLORIDE
     Indication: Premedication
     Dosage: SUBSEQUENT DOSES ON: 07/MAR/2019, 22/AUG/2019, 30/JAN/2020,16/JUL/2020,23/DEC/2020, 18/JUN/2021,14/D
     Route: 048
     Dates: start: 20190221
  30. METAMIZOLE [Concomitant]
     Active Substance: METAMIZOLE
     Indication: Premedication
     Dosage: G/2ML?SUBSEQUENT DOSES ON: 07/MAR/2019, 22/AUG/2019, 30/JAN/2020,16/JUL/2020,23/DEC/2020, 18/JUN/202
     Route: 042
     Dates: start: 20190221
  31. COMIRNATY [Concomitant]
     Active Substance: TOZINAMERAN
     Dosage: THIRD DOSE ON 30/DEC/2021
  32. PFIZER-BIONTECH COVID-19 VACCINE [Concomitant]
     Active Substance: TOZINAMERAN
     Dates: start: 20211230
  33. AD26.COV2.S [Concomitant]
     Active Substance: AD26.COV2.S
     Dates: start: 20220429
  34. ESCITALOPRAM [Concomitant]
     Active Substance: ESCITALOPRAM OXALATE
     Dates: start: 202109
  35. ENOXAPARIN SODIUM [Concomitant]
     Active Substance: ENOXAPARIN SODIUM
     Route: 058
     Dates: start: 20220209, end: 20220311
  36. SIMVASTATIN [Concomitant]
     Active Substance: SIMVASTATIN
     Dosage: NEXT DOSE ON 16/FEB/2022
     Route: 048
     Dates: start: 20220209, end: 20220211
  37. DIPYRONE [Concomitant]
     Active Substance: DIPYRONE
     Dosage: SUBSEQUENT DOSE ON 11/FEB/2022
     Route: 042
     Dates: start: 20220209, end: 20220306
  38. DUTASTERIDE\TAMSULOSIN [Concomitant]
     Active Substance: DUTASTERIDE\TAMSULOSIN
     Route: 048
     Dates: start: 20220209, end: 20220211
  39. BROMOPRIDE [Concomitant]
     Active Substance: BROMOPRIDE
     Route: 042
     Dates: start: 20220210, end: 20220311
  40. ZOLPIDEM [Concomitant]
     Active Substance: ZOLPIDEM TARTRATE
     Route: 048
     Dates: start: 20220209, end: 20220210
  41. ALBUTEROL [Concomitant]
     Active Substance: ALBUTEROL
     Dosage: 1 PUFF
     Dates: start: 20220211, end: 20220211
  42. TERBUTALINE [Concomitant]
     Active Substance: TERBUTALINE
     Route: 060
     Dates: start: 20220211, end: 20220211
  43. SUCCINYLCHOLINE CHLORIDE [Concomitant]
     Active Substance: SUCCINYLCHOLINE CHLORIDE
     Route: 042
     Dates: start: 20220211, end: 20220211
  44. PROPOFOL [Concomitant]
     Active Substance: PROPOFOL
     Dosage: NEXT DOSE ON 20/FEB/2022
     Route: 042
     Dates: start: 20220211, end: 20220211
  45. NOREPINEPHRINE [Concomitant]
     Active Substance: NOREPINEPHRINE
     Dates: start: 20220211, end: 20220213
  46. LIDOCAINE [Concomitant]
     Active Substance: LIDOCAINE
     Dosage: NEXT DOSE ON 15/FEB/2022
     Route: 058
     Dates: start: 20220211, end: 20220212
  47. ROCURONIUM [Concomitant]
     Active Substance: ROCURONIUM BROMIDE
     Dosage: PRN
     Route: 042
     Dates: start: 20220211, end: 20220218
  48. FENTANYL [Concomitant]
     Active Substance: FENTANYL
     Route: 042
     Dates: start: 20220211
  49. ETOMIDATE [Concomitant]
     Active Substance: ETOMIDATE
     Route: 042
     Dates: start: 20220211, end: 20220211
  50. MIDAZOLAM [Concomitant]
     Active Substance: MIDAZOLAM
     Route: 042
     Dates: start: 20220211, end: 20220220
  51. PANCURONIUM BROMIDE [Concomitant]
     Active Substance: PANCURONIUM BROMIDE
     Route: 042
     Dates: start: 20220214, end: 20220214
  52. MEROPENEM [Concomitant]
     Active Substance: MEROPENEM
     Dates: start: 20220214, end: 20220222
  53. LINEZOLID [Concomitant]
     Active Substance: LINEZOLID
     Route: 042
     Dates: start: 20220214, end: 20220222
  54. SODIUM CHLORIDE [Concomitant]
     Active Substance: SODIUM CHLORIDE
     Route: 042
     Dates: start: 20220215, end: 20220215
  55. LACTULOSE [Concomitant]
     Active Substance: LACTULOSE
     Dates: start: 20220216, end: 20220223
  56. PANTOPRAZOLE [Concomitant]
     Active Substance: PANTOPRAZOLE
     Indication: Prophylaxis
     Route: 042
     Dates: start: 20220217, end: 20220302
  57. LACTATED RINGERS SOLUTION [Concomitant]
     Active Substance: CALCIUM CHLORIDE\POTASSIUM CHLORIDE\SODIUM CHLORIDE\SODIUM LACTATE
     Route: 042
     Dates: start: 20220220, end: 20220222
  58. DEXMEDETOMIDINE [Concomitant]
     Active Substance: DEXMEDETOMIDINE
     Route: 042
     Dates: start: 20220219, end: 20220224
  59. PROMETHAZINE [Concomitant]
     Active Substance: PROMETHAZINE HYDROCHLORIDE
     Route: 030
     Dates: start: 20220219, end: 20220219
  60. HALOPERIDOL [Concomitant]
     Active Substance: HALOPERIDOL
     Route: 030
     Dates: start: 20220219, end: 20220219
  61. TRAMADOL [Concomitant]
     Active Substance: TRAMADOL
     Route: 042
     Dates: start: 20220222, end: 20220222
  62. ONDANSETRON [Concomitant]
     Active Substance: ONDANSETRON
     Route: 042
     Dates: start: 20220222, end: 20220301
  63. KETOPROFEN [Concomitant]
     Active Substance: KETOPROFEN
     Route: 015
     Dates: start: 20220223, end: 20220225
  64. AMLODIPINE [Concomitant]
     Active Substance: AMLODIPINE BESYLATE
     Dates: start: 20220225, end: 20220311
  65. SULFAMETHOXAZOLE\TRIMETHOPRIM [Concomitant]
     Active Substance: SULFAMETHOXAZOLE\TRIMETHOPRIM
     Dates: start: 20220224, end: 20220302
  66. CLONIDINE [Concomitant]
     Active Substance: CLONIDINE
     Route: 042
     Dates: start: 20220225, end: 20220225
  67. MORPHINE [Concomitant]
     Active Substance: MORPHINE
     Route: 042
     Dates: start: 20220302, end: 20220302

REACTIONS (1)
  - COVID-19 [Recovered/Resolved]

NARRATIVE: CASE EVENT DATE: 20220125
